FAERS Safety Report 16580092 (Version 1)
Quarter: 2019Q3

REPORT INFORMATION
  Report Type: Spontaneous
  Country: DE (occurrence: DE)
  Receive Date: 20190716
  Receipt Date: 20190716
  Transmission Date: 20191004
  Serious: Yes (Hospitalization)
  Sender: FDA-Public Use
  Company Number: DE-TEVA-2019-DE-1077471

PATIENT
  Age: 54 Year
  Sex: Male

DRUGS (4)
  1. FLUOROURACIL. [Suspect]
     Active Substance: FLUOROURACIL
     Dosage: NK MG
     Dates: start: 201711
  2. PANITUMUMAB [Suspect]
     Active Substance: PANITUMUMAB
     Dosage: NK MG
  3. IRINOTECAN [Suspect]
     Active Substance: IRINOTECAN
     Dosage: NK MICROGRAMS
     Dates: start: 201711
  4. OMEPRAZOL [Concomitant]
     Active Substance: OMEPRAZOLE
     Dosage: 20 MG, 1-0-0-0

REACTIONS (3)
  - Vomiting [Unknown]
  - Abdominal pain upper [Unknown]
  - Dyspepsia [Unknown]
